FAERS Safety Report 18393065 (Version 10)
Quarter: 2021Q3

REPORT INFORMATION
  Report Type: Report from Study
  Country: GB (occurrence: GB)
  Receive Date: 20201016
  Receipt Date: 20210915
  Transmission Date: 20211014
  Serious: Yes (Death, Hospitalization, Other)
  Sender: FDA-Public Use
  Company Number: GB-PFIZER INC-2020396049

PATIENT
  Age: 71 Year
  Sex: Female
  Weight: 54 kg

DRUGS (24)
  1. TIOTROPIUM [Concomitant]
     Active Substance: TIOTROPIUM
     Indication: CHRONIC OBSTRUCTIVE PULMONARY DISEASE
     Dosage: UNK, DAILY
  2. VENLAFAXINE [Concomitant]
     Active Substance: VENLAFAXINE HYDROCHLORIDE
     Indication: DEPRESSION
     Dosage: UNK, 2X/DAY
     Dates: start: 20200820
  3. ZOPICLONE [Concomitant]
     Active Substance: ZOPICLONE
     Indication: PROPHYLAXIS
     Dosage: UNK, DAILY
     Dates: start: 20200731
  4. SANDO K [POTASSIUM BICARBONATE;POTASSIUM CHLORIDE] [Concomitant]
     Active Substance: POTASSIUM BICARBONATE\POTASSIUM CHLORIDE
     Indication: PROPHYLAXIS
     Dosage: UNK, 2X/DAY
     Dates: start: 20200819
  5. AMLODIPINE [Concomitant]
     Active Substance: AMLODIPINE BESYLATE
     Indication: HYPERTENSION
     Dosage: UNK, 1X/DAY
  6. LANSOPRAZOLE. [Suspect]
     Active Substance: LANSOPRAZOLE
     Indication: PROPHYLAXIS
     Dosage: UNK UNK, QD
     Route: 065
     Dates: start: 20170101
  7. ORAMORPH SR SUSTAINED RELEASE [Concomitant]
     Active Substance: MORPHINE SULFATE
     Indication: PAIN
     Dosage: UNK, DAILY
     Dates: start: 20200727
  8. SANDO K [POTASSIUM BICARBONATE;POTASSIUM CHLORIDE] [Concomitant]
     Active Substance: POTASSIUM BICARBONATE\POTASSIUM CHLORIDE
     Dosage: UNK
     Dates: start: 20200828, end: 20200901
  9. MORPHINE SULPHATE [Concomitant]
     Active Substance: MORPHINE SULFATE
     Indication: PROPHYLAXIS
     Dosage: UNK
     Dates: start: 20200825
  10. ETOPOSIDE. [Suspect]
     Active Substance: ETOPOSIDE
     Dosage: 148 MILLIGRAM
     Route: 065
     Dates: start: 20200729
  11. SOLPADOL [CODEINE PHOSPHATE;PARACETAMOL] [Concomitant]
     Active Substance: ACETAMINOPHEN\CODEINE PHOSPHATE
     Indication: PAIN
     Dosage: UNK, 2X/DAY
  12. ATEZOLIZUMAB. [Suspect]
     Active Substance: ATEZOLIZUMAB
     Indication: TRANSITIONAL CELL CARCINOMA
     Dosage: 1200 MG, EVERY 3 WEEKS
     Route: 041
     Dates: start: 20200729
  13. DIFFLAM [Concomitant]
     Indication: PROPHYLAXIS
     Dosage: UNK
     Dates: start: 20200819
  14. FORMOTEROL [Concomitant]
     Active Substance: FORMOTEROL
     Indication: HYPERTENSION
     Dosage: UNK, 2X/DAY
     Dates: start: 20200301
  15. SALBUTAMOL [Concomitant]
     Active Substance: ALBUTEROL
     Indication: PROPHYLAXIS
     Dosage: UNK
  16. CIPROFLOXACIN. [Concomitant]
     Active Substance: CIPROFLOXACIN
     Indication: PROPHYLAXIS
     Dosage: UNK, 2X/DAY
     Dates: start: 20200827
  17. LACTULOSE. [Concomitant]
     Active Substance: LACTULOSE
     Indication: PROPHYLAXIS
     Dosage: UNK, 2X/DAY
  18. CLOPIDOGREL [Concomitant]
     Active Substance: CLOPIDOGREL BISULFATE
     Indication: HYPERTENSION
     Dosage: UNK, DAILY
  19. VENLAFAXINE [Concomitant]
     Active Substance: VENLAFAXINE HYDROCHLORIDE
     Dosage: UNK, 1X/DAY
     Dates: start: 20200820
  20. MORPHINE SULPHATE [Concomitant]
     Active Substance: MORPHINE SULFATE
     Indication: PAIN
     Dosage: UNK, 2X/DAY
     Dates: start: 20200731
  21. CARBOPLATIN. [Suspect]
     Active Substance: CARBOPLATIN
     Indication: NON-SMALL CELL LUNG CANCER
     Dosage: 450 MG
     Route: 065
     Dates: start: 20200729
  22. ATEZOLIZUMAB. [Suspect]
     Active Substance: ATEZOLIZUMAB
     Indication: SMALL CELL LUNG CANCER
     Dosage: 1200 MG, EVERY 3 WEEKS
     Route: 042
  23. ATEZOLIZUMAB. [Suspect]
     Active Substance: ATEZOLIZUMAB
     Indication: NON-SMALL CELL LUNG CANCER
     Dosage: 1200 MG, EVERY 3 WEEKS
     Route: 041
     Dates: start: 20200819
  24. ETOPOSIDE. [Suspect]
     Active Substance: ETOPOSIDE
     Indication: NON-SMALL CELL LUNG CANCER
     Dosage: 600 MG
     Route: 048
     Dates: start: 20200730

REACTIONS (22)
  - Neutropenic sepsis [Not Recovered/Not Resolved]
  - Nausea [Recovered/Resolved]
  - Productive cough [Not Recovered/Not Resolved]
  - Hypomagnesaemia [Recovered/Resolved]
  - Headache [Not Recovered/Not Resolved]
  - Diarrhoea [Recovered/Resolved]
  - Dehydration [Not Recovered/Not Resolved]
  - Dyspnoea [Not Recovered/Not Resolved]
  - Nervous system disorder [Not Recovered/Not Resolved]
  - Decreased appetite [Unknown]
  - Mouth ulceration [Recovered/Resolved]
  - Anaemia [Not Recovered/Not Resolved]
  - Depression [Not Recovered/Not Resolved]
  - Skin candida [Not Recovered/Not Resolved]
  - Balance disorder [Unknown]
  - Mucosal inflammation [Not Recovered/Not Resolved]
  - Neutrophil count decreased [Unknown]
  - Dysphagia [Not Recovered/Not Resolved]
  - Hypokalaemia [Recovered/Resolved]
  - Vomiting [Not Recovered/Not Resolved]
  - Constipation [Not Recovered/Not Resolved]
  - Asthenia [Unknown]

NARRATIVE: CASE EVENT DATE: 20200730
